FAERS Safety Report 7865094-X (Version None)
Quarter: 2011Q4

REPORT INFORMATION
  Report Type: 
  Country: None (occurrence: None)
  Receive Date: 20111028
  Receipt Date: 20101013
  Transmission Date: 20120403
  Serious: No
  Sender: FDA-Public Use
  Company Number: US-GLAXOSMITHKLINE-A0886397A

PATIENT
  Age: 79 Year
  Sex: Female

DRUGS (3)
  1. ATENOLOL [Concomitant]
  2. VENTOLIN [Suspect]
     Indication: EMPHYSEMA
     Route: 055
     Dates: start: 20100924, end: 20100901
  3. ADVAIR DISKUS 100/50 [Suspect]
     Indication: EMPHYSEMA
     Route: 055
     Dates: start: 20100924, end: 20100901

REACTIONS (6)
  - HYPERSENSITIVITY [None]
  - DIZZINESS [None]
  - RASH MACULAR [None]
  - LACRIMATION INCREASED [None]
  - EYE PRURITUS [None]
  - BLOOD PRESSURE INCREASED [None]
